FAERS Safety Report 19423008 (Version 4)
Quarter: 2021Q3

REPORT INFORMATION
  Report Type: Spontaneous
  Country: US (occurrence: US)
  Receive Date: 20210616
  Receipt Date: 20210929
  Transmission Date: 20211014
  Serious: No
  Sender: FDA-Public Use
  Company Number: US-GLAXOSMITHKLINE-US2021128515

PATIENT
  Sex: Female

DRUGS (3)
  1. ZEJULA [Suspect]
     Active Substance: NIRAPARIB
     Dosage: 200 MG, QD
     Route: 048
  2. ZEJULA [Suspect]
     Active Substance: NIRAPARIB
     Dosage: 200 MG, QD
  3. ZEJULA [Suspect]
     Active Substance: NIRAPARIB
     Indication: OVARIAN CANCER
     Dosage: 200 MG, QD
     Dates: start: 20210603

REACTIONS (11)
  - Fatigue [Unknown]
  - Insomnia [Unknown]
  - Heart rate increased [Unknown]
  - Excessive cerumen production [Unknown]
  - Hypertension [Unknown]
  - Constipation [Unknown]
  - Pain [Unknown]
  - Drug monitoring procedure not performed [Unknown]
  - Nausea [Unknown]
  - Headache [Recovered/Resolved]
  - Blood pressure increased [Unknown]
